FAERS Safety Report 21530187 (Version 1)
Quarter: 2022Q4

REPORT INFORMATION
  Report Type: Spontaneous
  Country: US (occurrence: US)
  Receive Date: 20221031
  Receipt Date: 20221031
  Transmission Date: 20230113
  Serious: Yes (Life-Threatening, Hospitalization)
  Sender: FDA-Public Use
  Company Number: US-BEXIMCO-2022BEX00062

PATIENT
  Age: 17 Year
  Sex: Female

DRUGS (2)
  1. NADOLOL [Suspect]
     Active Substance: NADOLOL
     Route: 065
  2. NORTRIPTYLINE [Suspect]
     Active Substance: NORTRIPTYLINE
     Route: 065

REACTIONS (6)
  - Overdose [Recovered/Resolved]
  - Seizure [Recovered/Resolved]
  - Cardiac arrest [Recovered/Resolved]
  - Hypotension [None]
  - Electrocardiogram QRS complex prolonged [Recovered/Resolved]
  - Encephalopathy [Recovered/Resolved]
